FAERS Safety Report 10260994 (Version 6)
Quarter: 2014Q4

REPORT INFORMATION
  Report Type: Spontaneous
  Country: US (occurrence: None)
  Receive Date: 20140623
  Receipt Date: 20141017
  Transmission Date: 20150528
  Serious: Yes (Other)
  Sender: FDA-Public Use
  Company Number: US-001019

PATIENT
  Sex: Male
  Weight: 88.45 kg

DRUGS (7)
  1. VITAMIN D3 [Concomitant]
     Active Substance: CHOLECALCIFEROL
  2. FLOVENT [Concomitant]
     Active Substance: FLUTICASONE PROPIONATE
  3. VITAMIN B12 [Concomitant]
     Active Substance: CYANOCOBALAMIN
  4. GATTEX [Suspect]
     Active Substance: TEDUGLUTIDE\WATER
     Indication: SHORT-BOWEL SYNDROME
     Route: 058
     Dates: start: 20140512
  5. FISH OIL [Concomitant]
     Active Substance: FISH OIL
  6. SOLUTIONS FOR PARENTERAL NUTRITION [Concomitant]
     Active Substance: AMINO ACIDS\DEXTROSE\ELECTROLYTES NOS
  7. XANAX [Concomitant]
     Active Substance: ALPRAZOLAM

REACTIONS (10)
  - Abdominal distension [None]
  - Asthma [None]
  - Weight decreased [None]
  - Nausea [None]
  - Dyspnoea [None]
  - Weight increased [None]
  - Food intolerance [None]
  - Dizziness [None]
  - Chills [None]
  - Pyrexia [None]

NARRATIVE: CASE EVENT DATE: 2014
